FAERS Safety Report 13507538 (Version 1)
Quarter: 2017Q2

REPORT INFORMATION
  Report Type: Spontaneous
  Country: US (occurrence: US)
  Receive Date: 20170502
  Receipt Date: 20170502
  Transmission Date: 20170830
  Serious: Yes (Hospitalization)
  Sender: FDA-Public Use
  Company Number: None

PATIENT
  Age: 53 Year
  Sex: Male
  Weight: 77 kg

DRUGS (1)
  1. ASPIRIN. [Suspect]
     Active Substance: ASPIRIN
     Indication: SELF-MEDICATION
     Route: 048
     Dates: start: 20170114, end: 20170115

REACTIONS (8)
  - Dyspnoea [None]
  - Acidosis [None]
  - Chills [None]
  - Tinnitus [None]
  - Blood creatine increased [None]
  - Tachypnoea [None]
  - Tachycardia [None]
  - Blood urea increased [None]

NARRATIVE: CASE EVENT DATE: 20170117
